FAERS Safety Report 14472030 (Version 1)
Quarter: 2018Q1

REPORT INFORMATION
  Report Type: Spontaneous
  Country: US (occurrence: US)
  Receive Date: 20180131
  Receipt Date: 20180131
  Transmission Date: 20180509
  Serious: Yes (Hospitalization, Other)
  Sender: FDA-Public Use
  Company Number: US-SUNOVION-2018SUN000303

PATIENT
  Sex: Female

DRUGS (7)
  1. BROVANA [Suspect]
     Active Substance: ARFORMOTEROL TARTRATE
     Dosage: 1/2 VIAL TWICE DAILY STARTED IN HOSPITAL
     Route: 055
  2. BROVANA [Suspect]
     Active Substance: ARFORMOTEROL TARTRATE
     Dosage: UNK
     Route: 055
  3. ALBUTEROL. [Concomitant]
     Active Substance: ALBUTEROL
     Dosage: 1/2 VIAL TWICE DAILY
     Route: 055
  4. BROVANA [Suspect]
     Active Substance: ARFORMOTEROL TARTRATE
     Dosage: 1/2 VIAL TWICE DAILY ALONG WITH ALBUTEROL NEBULIZED TWICE DAILY TWO HOURS AFTER BROVANA
     Route: 055
     Dates: start: 20180119
  5. ALBUTEROL. [Concomitant]
     Active Substance: ALBUTEROL
     Dosage: UNK
     Route: 055
  6. OXYGEN. [Concomitant]
     Active Substance: OXYGEN
  7. ALBUTEROL. [Concomitant]
     Active Substance: ALBUTEROL
     Dosage: 1/2 VIAL TWICE DAILY ALONG WITH ALBUTEROL NEBULIZED TWICE DAILY TWO HOURS AFTER BROVANA
     Dates: start: 20180119

REACTIONS (7)
  - Pain [Unknown]
  - Feeling abnormal [Unknown]
  - Escherichia infection [Unknown]
  - Hallucination, visual [Unknown]
  - Oxygen consumption decreased [Unknown]
  - Urinary tract infection [Unknown]
  - Drug administration error [Unknown]
